FAERS Safety Report 23943588 (Version 3)
Quarter: 2024Q3

REPORT INFORMATION
  Report Type: Report from Study
  Country: ES (occurrence: ES)
  Receive Date: 20240606
  Receipt Date: 20240710
  Transmission Date: 20241017
  Serious: Yes (Other)
  Sender: UCB
  Company Number: ES-UCBSA-2024027155

PATIENT
  Sex: Male

DRUGS (1)
  1. FINTEPLA [Suspect]
     Active Substance: FENFLURAMINE
     Indication: Lennox-Gastaut syndrome
     Dosage: 0.7 MILLIGRAM/KILOGRAM

REACTIONS (2)
  - Seizure [Unknown]
  - Drug ineffective [Unknown]
